FAERS Safety Report 13976631 (Version 3)
Quarter: 2017Q3

REPORT INFORMATION
  Report Type: Report from Study
  Country: BR (occurrence: BR)
  Receive Date: 20170915
  Receipt Date: 20170929
  Transmission Date: 20171128
  Serious: Yes (Other)
  Sender: FDA-Public Use
  Company Number: PHHY2017BR116847

PATIENT
  Sex: Female
  Weight: 72 kg

DRUGS (2)
  1. COSENTYX [Suspect]
     Active Substance: SECUKINUMAB
     Indication: PSORIATIC ARTHROPATHY
     Dosage: 300 MG, QMO (EVERY 4 WEEKS)
     Route: 058
     Dates: start: 201701
  2. COSENTYX [Suspect]
     Active Substance: SECUKINUMAB
     Indication: ANKYLOSING SPONDYLITIS
     Dosage: 300 MG, QMO (EVERY 4 WEEKS)
     Route: 058
     Dates: start: 20170729

REACTIONS (7)
  - Therapeutic response decreased [Unknown]
  - Urinary tract infection [Unknown]
  - Stress [Unknown]
  - Pharyngitis [Unknown]
  - Psoriasis [Unknown]
  - Decreased immune responsiveness [Unknown]
  - Malaise [Unknown]
